FAERS Safety Report 21653098 (Version 1)
Quarter: 2022Q4

REPORT INFORMATION
  Report Type: Spontaneous
  Country: FR (occurrence: FR)
  Receive Date: 20221128
  Receipt Date: 20221128
  Transmission Date: 20230113
  Serious: Yes (Hospitalization, Other)
  Sender: FDA-Public Use
  Company Number: FR-ROCHE-2640308

PATIENT
  Age: 23 Year
  Sex: Female
  Weight: 69 kg

DRUGS (10)
  1. PROPOFOL [Suspect]
     Active Substance: PROPOFOL
     Indication: Sedation
  2. PROPOFOL [Suspect]
     Active Substance: PROPOFOL
     Dosage: SOLUTION FOR INFUSION
     Route: 042
  3. MIDAZOLAM [Suspect]
     Active Substance: MIDAZOLAM
     Indication: Sedation
     Dosage: INJECTION, SOLUTION
     Route: 040
     Dates: start: 202005, end: 20200609
  4. VALACYCLOVIR HYDROCHLORIDE [Suspect]
     Active Substance: VALACYCLOVIR HYDROCHLORIDE
     Indication: Opportunistic infection prophylaxis
     Route: 048
     Dates: start: 20200604, end: 20200610
  5. RITUXIMAB [Suspect]
     Active Substance: RITUXIMAB
     Indication: Encephalitis autoimmune
     Route: 042
     Dates: start: 20200604, end: 20200604
  6. ENOXAPARIN SODIUM [Suspect]
     Active Substance: ENOXAPARIN SODIUM
     Indication: Thrombosis prophylaxis
     Dosage: SUBCUTANEOUS USE
     Dates: start: 202005, end: 20200610
  7. AMLODIPINE [Suspect]
     Active Substance: AMLODIPINE BESYLATE
     Indication: Hypertension
     Route: 048
     Dates: start: 202005, end: 20200610
  8. ACETAMINOPHEN [Suspect]
     Active Substance: ACETAMINOPHEN
     Indication: Gait disturbance
     Dates: start: 202005, end: 20200610
  9. BACTRIM [Suspect]
     Active Substance: SULFAMETHOXAZOLE\TRIMETHOPRIM
     Indication: Opportunistic infection prophylaxis
     Dates: start: 20200604, end: 20200610
  10. PREDNISONE [Suspect]
     Active Substance: PREDNISONE
     Indication: Encephalitis autoimmune
     Dates: start: 20200604, end: 20200610

REACTIONS (5)
  - Hepatitis acute [None]
  - Thrombocytopenia [None]
  - Posterior reversible encephalopathy syndrome [Recovering/Resolving]
  - Renal impairment [None]
  - Pseudomonas infection [None]

NARRATIVE: CASE EVENT DATE: 20200609
